FAERS Safety Report 7795778-3 (Version None)
Quarter: 2011Q4

REPORT INFORMATION
  Report Type: 
  Country: None (occurrence: None)
  Receive Date: 20111004
  Receipt Date: 20110923
  Transmission Date: 20120403
  Serious: Yes (Hospitalization, Other)
  Sender: FDA-Public Use
  Company Number: US-BAYER-201032774NA

PATIENT
  Age: 30 Year
  Sex: Female
  Weight: 52.154 kg

DRUGS (10)
  1. PREVACID [Concomitant]
  2. YASMIN [Suspect]
     Indication: ORAL CONTRACEPTION
     Dosage: UNK UNK, UNK
     Route: 048
     Dates: start: 20040101, end: 20080529
  3. DICYCLOMINE [Concomitant]
     Dosage: 10 MG, UNK
     Route: 048
     Dates: start: 20080804
  4. ALLERGY MEDICATION [Concomitant]
     Dosage: UNK
     Route: 048
     Dates: start: 20080714
  5. ANTACIDS [Concomitant]
  6. EQUATE [Concomitant]
     Dosage: UNK
     Route: 048
     Dates: start: 20080714
  7. BELLADONNA ALKALOIDS [Concomitant]
     Dosage: UNK
     Route: 048
     Dates: start: 20081013
  8. METOCLOPRAM [Concomitant]
     Dosage: 10 MG, UNK
     Route: 048
     Dates: start: 20081203
  9. DROSPIRENONE AND ETHINYL ESTRADIOL [Suspect]
     Indication: ORAL CONTRACEPTION
     Dosage: UNK UNK, UNK
     Route: 048
     Dates: start: 20080629, end: 20091021
  10. METHYLPREDNISOLONE [Concomitant]
     Dosage: 4 MG, UNK
     Route: 048
     Dates: start: 20081118

REACTIONS (3)
  - GALLBLADDER DISORDER [None]
  - BILIARY DYSKINESIA [None]
  - CHOLECYSTITIS CHRONIC [None]
